FAERS Safety Report 20959128 (Version 1)
Quarter: 2022Q2

REPORT INFORMATION
  Report Type: Spontaneous
  Country: HU (occurrence: HU)
  Receive Date: 20220614
  Receipt Date: 20220614
  Transmission Date: 20220721
  Serious: Yes (Hospitalization)
  Sender: FDA-Public Use
  Company Number: HU-JNJFOC-20220625923

PATIENT
  Age: 70 Year
  Sex: Male

DRUGS (14)
  1. ZYTIGA [Suspect]
     Active Substance: ABIRATERONE ACETATE
     Indication: Prostate cancer
     Route: 048
     Dates: start: 20200914, end: 20220114
  2. NIRAPARIB [Suspect]
     Active Substance: NIRAPARIB
     Indication: Prostate cancer
     Route: 048
     Dates: start: 20200914, end: 20220110
  3. PREDNISOLONE [Suspect]
     Active Substance: PREDNISOLONE
     Indication: Prostate cancer
     Route: 048
     Dates: start: 20200914, end: 20220110
  4. METFORMIN [Concomitant]
     Active Substance: METFORMIN HYDROCHLORIDE
     Indication: Diabetes mellitus
     Route: 048
     Dates: start: 200501
  5. ROSUVASTATIN [Concomitant]
     Active Substance: ROSUVASTATIN
     Indication: Hyperlipidaemia
     Route: 048
     Dates: start: 200501
  6. LEUPROLIDE ACETATE [Concomitant]
     Active Substance: LEUPROLIDE ACETATE
     Indication: Prostate cancer
     Route: 030
     Dates: start: 201908
  7. BISOPROLOL [Concomitant]
     Active Substance: BISOPROLOL
     Indication: Hypertension
     Route: 048
     Dates: start: 20200930, end: 20201209
  8. BISOPROLOL [Concomitant]
     Active Substance: BISOPROLOL
     Dates: end: 20201210
  9. MOTILIUM [Concomitant]
     Active Substance: DOMPERIDONE
     Indication: Gastrointestinal disorder
     Route: 048
     Dates: start: 20210105
  10. NEO FERRO FOLGAMMA [Concomitant]
     Indication: Anaemia
     Route: 048
     Dates: start: 20210717
  11. NEO FERRO FOLGAMMA [Concomitant]
     Indication: Anaemia
  12. ARANESP [Concomitant]
     Active Substance: DARBEPOETIN ALFA
     Indication: Anaemia
     Route: 058
     Dates: start: 20210722
  13. PANTOPRAZOLE [Concomitant]
     Active Substance: PANTOPRAZOLE
     Indication: Prophylaxis
     Route: 048
     Dates: start: 20220110
  14. HUMULIN R [Concomitant]
     Active Substance: INSULIN HUMAN
     Indication: Blood glucose increased
     Dosage: 1 UNIT
     Route: 058
     Dates: start: 20220110

REACTIONS (3)
  - Myositis [Recovered/Resolved]
  - Quadriparesis [Unknown]
  - Off label use [Unknown]

NARRATIVE: CASE EVENT DATE: 20200914
